FAERS Safety Report 7671847-3 (Version None)
Quarter: 2011Q3

REPORT INFORMATION
  Report Type: 
  Country: None (occurrence: None)
  Receive Date: 20110809
  Receipt Date: 20110802
  Transmission Date: 20111222
  Serious: Yes (Other)
  Sender: FDA-Public Use
  Company Number: MD-ROCHE-794804

PATIENT
  Age: 46 Year
  Sex: Female
  Weight: 102.8 kg

DRUGS (5)
  1. BEVACIZUMAB [Suspect]
     Dosage: 30-90 MIN ON DAY 1 OF WKS 1, 3, 5, 7, 9, 11, 13, 15 AND 17,CYCLE:19 WKS,ARM4.TOTAL DOSE:2158MG
     Route: 042
     Dates: start: 20110222
  2. PACLITAXEL [Suspect]
     Dosage: OVER 1 HR ON DAY 1 OF WKS 1-12,CYCLE:19WEEKS, TOTAL DOSE GIVEN:666MG, LAST DOSE ON 15 MARCH 2011
     Route: 042
     Dates: start: 20110222
  3. CARBOPLATIN [Suspect]
     Dosage: AUC 6 IV OVER 30 MIN ON DAY 1 OF WKS 1, 4, 7 AND 10. TOTAL DOSE GIVEN:1712MG,LAST DOSE ON 15/03/2011
     Route: 042
     Dates: start: 20110222
  4. CYCLOPHOSPHAMIDE [Suspect]
     Dosage: OVER 5-30 MIN ON DAY 1 OF WKS 13, 15, 17 AND 19
     Route: 042
     Dates: start: 20110222
  5. DOXORUBICIN HCL [Suspect]
     Dosage: OVER 5-10 MIN ON DAY 1 OF WKS 13, 15, 17 AND 19
     Route: 042
     Dates: start: 20110222

REACTIONS (1)
  - HYPERGLYCAEMIA [None]
